FAERS Safety Report 8461382-7 (Version None)
Quarter: 2012Q2

REPORT INFORMATION
  Report Type: 
  Country: None (occurrence: None)
  Receive Date: 20120625
  Receipt Date: 20120614
  Transmission Date: 20120825
  Serious: Yes (Other)
  Sender: FDA-Public Use
  Company Number: CA-JNJFOC-20120513494

PATIENT
  Sex: Female
  Weight: 60 kg

DRUGS (10)
  1. REMICADE [Suspect]
     Dosage: CONFLICTINGLY REPORTED AS INFUSION # 107
     Route: 042
     Dates: start: 20120614
  2. REMICADE [Suspect]
     Route: 042
     Dates: start: 20070101
  3. METHOTREXATE [Concomitant]
     Indication: RHEUMATOID ARTHRITIS
     Route: 048
  4. REMICADE [Suspect]
     Indication: RHEUMATOID ARTHRITIS
     Dosage: 107TH INFUSION
     Route: 042
     Dates: start: 20120513
  5. REMICADE [Suspect]
     Route: 042
     Dates: start: 20051001
  6. HYDROXYCHLOROQUINE SULFATE [Concomitant]
     Route: 065
  7. VENTOLIN [Concomitant]
     Indication: ASTHMA
     Route: 065
  8. SULFASALAZINE [Concomitant]
     Indication: RHEUMATOID ARTHRITIS
     Route: 048
  9. FLOVENT [Concomitant]
     Indication: ASTHMA
     Route: 065
  10. AMITRIPTYLINE HCL [Concomitant]
     Indication: FIBROMYALGIA
     Route: 065

REACTIONS (3)
  - CHOLECYSTITIS [None]
  - ENZYME LEVEL INCREASED [None]
  - CHOLELITHIASIS [None]
